FAERS Safety Report 10205275 (Version 1)
Quarter: 2014Q2

REPORT INFORMATION
  Report Type: Spontaneous
  Country: US (occurrence: US)
  Receive Date: 20140529
  Receipt Date: 20140529
  Transmission Date: 20141212
  Serious: No
  Sender: FDA-Public Use
  Company Number: US-SA-2014SA028505

PATIENT
  Age: 57 Year
  Sex: Female

DRUGS (2)
  1. LANTUS SOLOSTAR [Suspect]
     Indication: TYPE 1 DIABETES MELLITUS
     Dosage: DOSE:13 UNIT(S)
     Route: 058
  2. PRANDIN [Suspect]
     Route: 065

REACTIONS (5)
  - Fatigue [Unknown]
  - Malaise [Unknown]
  - Visual impairment [Unknown]
  - Blood glucose increased [Unknown]
  - Feeling abnormal [Unknown]
